FAERS Safety Report 21249105 (Version 2)
Quarter: 2022Q4

REPORT INFORMATION
  Report Type: Spontaneous
  Country: JP (occurrence: JP)
  Receive Date: 20220824
  Receipt Date: 20221007
  Transmission Date: 20230112
  Serious: Yes (Death, Life-Threatening, Hospitalization, Other)
  Sender: FDA-Public Use
  Company Number: JP-AMGEN-JPNSP2022144967

PATIENT
  Age: 79 Year
  Sex: Male

DRUGS (1)
  1. LUMAKRAS [Suspect]
     Active Substance: SOTORASIB
     Indication: Non-small cell lung cancer
     Dosage: 960 MILLIGRAM, QD
     Route: 048
     Dates: start: 202203, end: 20220729

REACTIONS (5)
  - Pleural effusion [Fatal]
  - Non-small cell lung cancer metastatic [Fatal]
  - Respiratory failure [Fatal]
  - Therapy partial responder [Unknown]
  - Malaise [Unknown]

NARRATIVE: CASE EVENT DATE: 20220101
